FAERS Safety Report 16905375 (Version 2)
Quarter: 2020Q2

REPORT INFORMATION
  Report Type: Spontaneous
  Country: US (occurrence: US)
  Receive Date: 20191010
  Receipt Date: 20200513
  Transmission Date: 20200713
  Serious: No
  Sender: FDA-Public Use
  Company Number: US-SA-2019SA276602

PATIENT
  Age: 19 Year
  Sex: Female

DRUGS (3)
  1. MOMETASONE FUROATE. [Concomitant]
     Active Substance: MOMETASONE FUROATE
  2. DUPIXENT [Suspect]
     Active Substance: DUPILUMAB
     Indication: DERMATITIS ATOPIC
     Dosage: 300 MG, QOW
     Dates: start: 201905
  3. TACROLIMUS. [Concomitant]
     Active Substance: TACROLIMUS

REACTIONS (5)
  - Dermatitis atopic [Unknown]
  - Drug ineffective [Unknown]
  - Pruritus [Unknown]
  - Dry skin [Unknown]
  - Stress [Unknown]

NARRATIVE: CASE EVENT DATE: 2019
